FAERS Safety Report 8893268 (Version 1)
Quarter: 2012Q4

REPORT INFORMATION
  Report Type: 
  Country: NZ (occurrence: NZ)
  Receive Date: 20121108
  Receipt Date: 20121108
  Transmission Date: 20130627
  Serious: Yes (Hospitalization)
  Sender: FDA-Public Use
  Company Number: PHHY2012NZ097134

PATIENT
  Age: 51 Year
  Sex: Female

DRUGS (1)
  1. CLOZARIL [Suspect]
     Indication: SCHIZOPHRENIA
     Dates: start: 20010221

REACTIONS (4)
  - Mania [Unknown]
  - Malaise [Not Recovered/Not Resolved]
  - Psychiatric decompensation [Unknown]
  - Blood test abnormal [Unknown]
